FAERS Safety Report 20742018 (Version 2)
Quarter: 2022Q3

REPORT INFORMATION
  Report Type: Spontaneous
  Country: GB (occurrence: GB)
  Receive Date: 20220423
  Receipt Date: 20220806
  Transmission Date: 20221026
  Serious: Yes (Hospitalization, Other)
  Sender: FDA-Public Use
  Company Number: GB-LUPIN PHARMACEUTICALS INC.-2022-06011

PATIENT
  Age: 8 Decade
  Sex: Male

DRUGS (5)
  1. RIFAMPIN [Suspect]
     Active Substance: RIFAMPIN
     Indication: Disseminated Bacillus Calmette-Guerin infection
     Dosage: 600 MG, QD
     Route: 065
  2. ETHAMBUTOL [Suspect]
     Active Substance: ETHAMBUTOL HYDROCHLORIDE
     Indication: Disseminated Bacillus Calmette-Guerin infection
     Dosage: 1000 MG, QD
     Route: 065
  3. ISONIAZID [Suspect]
     Active Substance: ISONIAZID
     Indication: Disseminated Bacillus Calmette-Guerin infection
     Dosage: 300 MG, QD
     Route: 065
  4. BCG VACCINE [Concomitant]
     Active Substance: BCG VACCINE
     Indication: Bladder cancer
     Dosage: INDUCTION INSTILLATION
     Route: 043
  5. BCG VACCINE [Concomitant]
     Active Substance: BCG VACCINE
     Dosage: MAINTENANCE INSTILLATIONS
     Route: 043

REACTIONS (3)
  - Hypersensitivity [Recovered/Resolved]
  - Paradoxical drug reaction [Recovered/Resolved]
  - Bronchiolitis [Recovered/Resolved]
